FAERS Safety Report 5364886-9 (Version None)
Quarter: 2007Q2

REPORT INFORMATION
  Report Type: 
  Country: None (occurrence: None)
  Receive Date: 20070606
  Receipt Date: 20070316
  Transmission Date: 20071010
  Serious: Yes (Other)
  Sender: FDA-Public Use
  Company Number: 2007021485

PATIENT
  Sex: Female

DRUGS (1)
  1. ELLENCE [Suspect]

REACTIONS (1)
  - MULTIPLE GATED ACQUISITION SCAN ABNORMAL [None]
